FAERS Safety Report 13694216 (Version 1)
Quarter: 2017Q2

REPORT INFORMATION
  Report Type: Report from Study
  Country: None (occurrence: ZA)
  Receive Date: 20170627
  Receipt Date: 20170627
  Transmission Date: 20170830
  Serious: Yes (Hospitalization, Other)
  Sender: FDA-Public Use
  Company Number: ZA-ABBVIE-17P-143-1916475-00

PATIENT
  Age: 63 Year
  Sex: Female
  Weight: 53.1 kg

DRUGS (1)
  1. HUMIRA [Suspect]
     Active Substance: ADALIMUMAB
     Indication: RHEUMATOID ARTHRITIS
     Route: 058

REACTIONS (7)
  - Haemoglobin decreased [Unknown]
  - Herpes zoster [Unknown]
  - Rash [Unknown]
  - Pneumonia [Unknown]
  - Malaise [Unknown]
  - Septic shock [Unknown]
  - Back pain [Unknown]

NARRATIVE: CASE EVENT DATE: 20161117
